FAERS Safety Report 8998632 (Version 1)
Quarter: 2020Q3

REPORT INFORMATION
  Report Type: Spontaneous
  Country: DE (occurrence: DE)
  Receive Date: 20130103
  Receipt Date: 20130103
  Transmission Date: 20201104
  Serious: Yes (Hospitalization, Disabling)
  Sender: FDA-Public Use
  Company Number: PHHY2012DE120398

PATIENT
  Age: 73 Year
  Sex: Female
  Weight: 116 kg

DRUGS (11)
  1. METFORMIN [Suspect]
     Active Substance: METFORMIN HYDROCHLORIDE
     Indication: TYPE 2 DIABETES MELLITUS
     Dosage: 1000 MG, BID
     Route: 048
  2. LASIX [Concomitant]
     Active Substance: FUROSEMIDE
     Dosage: 1 DF, DAILY
     Route: 048
  3. IBANDRONIC ACID. [Suspect]
     Active Substance: IBANDRONIC ACID
     Indication: BREAST CANCER
     Dosage: 6 MG, ONE IN FOUR WEEKS
     Route: 042
     Dates: start: 20080415
  4. VOLTAREN [Concomitant]
     Active Substance: DICLOFENAC SODIUM
     Dosage: UNK UKN, UNK
     Route: 048
  5. ARLEVERT [Concomitant]
     Active Substance: CINNARIZINE\DIMENHYDRINATE
     Dosage: 20/40 MG TWO IN ONE DAY
     Route: 048
  6. ACC [Concomitant]
     Active Substance: ACETYLCYSTEINE
     Dosage: 200 MG, BID
     Route: 048
  7. CAPECITABINE. [Suspect]
     Active Substance: CAPECITABINE
     Indication: BREAST CANCER
     Dosage: 4500 MG, (2000?0?2500)
     Route: 048
     Dates: start: 20080416
  8. IBUPROFEN. [Concomitant]
     Active Substance: IBUPROFEN
     Dosage: 1 DF, DAILY
     Route: 048
  9. DARIFENACIN. [Suspect]
     Active Substance: DARIFENACIN
     Indication: URGE INCONTINENCE
     Dosage: 1 DF, DAILY
     Route: 048
  10. IRBESARTAN AND HYDROCHLOROTHIAZIDE [Suspect]
     Active Substance: HYDROCHLOROTHIAZIDE\IRBESARTAN
     Indication: HYPERTENSION
     Dosage: 150/12.5 TWO IN ONE DAY
     Route: 048
  11. ARIMIDEX [Concomitant]
     Active Substance: ANASTROZOLE
     Dosage: 1 DF, DAILY
     Route: 048

REACTIONS (7)
  - Radius fracture [Recovered/Resolved]
  - Nausea [Recovering/Resolving]
  - Fall [Recovered/Resolved]
  - Headache [Recovering/Resolving]
  - Vertigo [Unknown]
  - Concussion [Recovered/Resolved]
  - Abscess [Unknown]

NARRATIVE: CASE EVENT DATE: 20080903
